FAERS Safety Report 11496330 (Version 2)
Quarter: 2016Q4

REPORT INFORMATION
  Report Type: Report from Study
  Country: FR (occurrence: FR)
  Receive Date: 20150911
  Receipt Date: 20161007
  Transmission Date: 20170206
  Serious: Yes (Other)
  Sender: FDA-Public Use
  Company Number: FR-JNJFOC-20150902253

PATIENT
  Age: 50 Year
  Sex: Male
  Weight: 70 kg

DRUGS (1)
  1. STELARA [Suspect]
     Active Substance: USTEKINUMAB
     Indication: PSORIASIS
     Dosage: TOTAL NUMBER OF INFUSION WAS 4
     Route: 058
     Dates: start: 20150511

REACTIONS (1)
  - Basal cell carcinoma [Recovered/Resolved]

NARRATIVE: CASE EVENT DATE: 20150604
